FAERS Safety Report 24072561 (Version 1)
Quarter: 2024Q3

REPORT INFORMATION
  Report Type: Spontaneous
  Country: US (occurrence: None)
  Receive Date: 20240710
  Receipt Date: 20240710
  Transmission Date: 20241016
  Serious: No
  Sender: Public
  Company Number: None

PATIENT
  Age: 29 Year
  Sex: Female
  Weight: 74.25 kg

DRUGS (3)
  1. BUPROPION [Suspect]
     Active Substance: BUPROPION
     Indication: Attention deficit hyperactivity disorder
     Route: 048
     Dates: start: 20240610, end: 20240701
  2. ZOLOFT [Concomitant]
     Active Substance: SERTRALINE HYDROCHLORIDE
  3. Birth control [Concomitant]

REACTIONS (2)
  - Rash [None]
  - Rash pruritic [None]

NARRATIVE: CASE EVENT DATE: 20240630
